FAERS Safety Report 13250038 (Version 1)
Quarter: 2017Q1

REPORT INFORMATION
  Report Type: Spontaneous
  Country: US (occurrence: US)
  Receive Date: 20170218
  Receipt Date: 20170218
  Transmission Date: 20170428
  Serious: No
  Sender: FDA-Public Use
  Company Number: US-ALLERGAN-1666154US

PATIENT
  Age: 46 Year
  Sex: Female
  Weight: 72.56 kg

DRUGS (2)
  1. VITAMIN D [Concomitant]
     Active Substance: CHOLECALCIFEROL
     Indication: SUPPLEMENTATION THERAPY
     Dosage: UNK
  2. RESTASIS [Suspect]
     Active Substance: CYCLOSPORINE
     Indication: DRY EYE
     Dosage: 1 GTT, BID
     Route: 047
     Dates: start: 20160725

REACTIONS (2)
  - Dry mouth [Not Recovered/Not Resolved]
  - Salivary hypersecretion [Not Recovered/Not Resolved]

NARRATIVE: CASE EVENT DATE: 20160725
